FAERS Safety Report 6774334-X (Version None)
Quarter: 2010Q2

REPORT INFORMATION
  Report Type: 
  Country: None (occurrence: None)
  Receive Date: 20100617
  Receipt Date: 20100607
  Transmission Date: 20101027
  Serious: Yes (Hospitalization)
  Sender: FDA-Public Use
  Company Number: JP-JNJFOC-20100603924

PATIENT
  Sex: Female
  Weight: 54.3 kg

DRUGS (16)
  1. LOPEMIN [Suspect]
     Indication: DIARRHOEA
     Route: 048
  2. FLUOROURACIL [Suspect]
     Indication: LARGE INTESTINE CARCINOMA
     Route: 042
  3. FLUOROURACIL [Suspect]
     Route: 042
  4. CALCIUM FOLINATE [Suspect]
     Indication: LARGE INTESTINE CARCINOMA
     Dosage: 200 MG/M2
     Route: 042
  5. IRINOTECAN [Suspect]
     Indication: LARGE INTESTINE CARCINOMA
     Dosage: 150 MG/M2
     Route: 042
  6. IRINOTECAN [Suspect]
     Dosage: 120 MG/M2
     Route: 042
  7. IRINOTECAN [Suspect]
     Route: 042
  8. AXITINIB [Suspect]
     Indication: LARGE INTESTINE CARCINOMA
     Route: 048
  9. LEUCOVORIN CALCIUM [Suspect]
     Indication: DRUG USE FOR UNKNOWN INDICATION
  10. BEVACIZUMAB [Suspect]
     Indication: COLORECTAL CANCER
  11. CANDESARTAN CILEXETIL [Concomitant]
     Indication: HYPERTENSION
     Route: 065
  12. AMLODIPINE BESYLATE [Concomitant]
     Indication: HYPERTENSION
     Route: 065
  13. SENNA [Concomitant]
     Route: 065
  14. NALOXONE HYDROCHLORIDE [Concomitant]
     Route: 048
  15. LANSOPRAZOLE [Concomitant]
     Route: 048
  16. NIFEDIPINE [Concomitant]
     Route: 048

REACTIONS (5)
  - BLOOD PRESSURE INCREASED [None]
  - FATIGUE [None]
  - GASTRIC ILEUS [None]
  - STOMATITIS [None]
  - WEIGHT DECREASED [None]
